FAERS Safety Report 23443356 (Version 1)
Quarter: 2024Q1

REPORT INFORMATION
  Report Type: Spontaneous
  Country: DE (occurrence: None)
  Receive Date: 20240125
  Receipt Date: 20240125
  Transmission Date: 20240410
  Serious: Yes (Other)
  Sender: FDA-Public Use
  Company Number: DE-ROCHE-3426842

PATIENT
  Sex: Female

DRUGS (1)
  1. ROZLYTREK [Suspect]
     Active Substance: ENTRECTINIB
     Indication: Non-small cell lung cancer
     Dosage: REDUCE DOSE: 400 MG
     Route: 065

REACTIONS (11)
  - Taste disorder [Unknown]
  - Ataxia [Not Recovered/Not Resolved]
  - Coordination abnormal [Unknown]
  - Urinary retention [Recovering/Resolving]
  - Weight increased [Unknown]
  - Dysphagia [Unknown]
  - Cognitive disorder [Unknown]
  - Dyspepsia [Not Recovered/Not Resolved]
  - Blood creatinine increased [Unknown]
  - Metastases to central nervous system [Unknown]
  - Headache [Unknown]

NARRATIVE: CASE EVENT DATE: 20230915
